FAERS Safety Report 14963535 (Version 1)
Quarter: 2018Q2

REPORT INFORMATION
  Report Type: Spontaneous
  Country: US (occurrence: US)
  Receive Date: 20180601
  Receipt Date: 20180601
  Transmission Date: 20180711
  Serious: Yes (Other)
  Sender: FDA-Public Use
  Company Number: US-BAYER-2018-096512

PATIENT
  Age: 22 Year
  Sex: Female

DRUGS (1)
  1. MIRENA [Suspect]
     Active Substance: LEVONORGESTREL
     Indication: CONTRACEPTION
     Dosage: 20 MCG/24HR, CONT
     Route: 015
     Dates: start: 201704

REACTIONS (8)
  - Urinary tract infection [None]
  - Polymenorrhoea [None]
  - Menstrual disorder [None]
  - Hair growth abnormal [None]
  - Genital haemorrhage [Not Recovered/Not Resolved]
  - Abdominal pain lower [None]
  - Abdominal pain [None]
  - Fungal infection [None]
